FAERS Safety Report 8913362 (Version 1)
Quarter: 2012Q4

REPORT INFORMATION
  Report Type: 
  Country: CA (occurrence: CA)
  Receive Date: 20121116
  Receipt Date: 20121116
  Transmission Date: 20130627
  Serious: Yes (Hospitalization, Other)
  Sender: FDA-Public Use
  Company Number: CA-FRI-1000040340

PATIENT
  Age: 57 Year
  Sex: Female

DRUGS (6)
  1. DILTIAZEM [Suspect]
  2. BISOPROLOL [Suspect]
  3. CANDESARTAN/HYDROCHLOROTHIAZIDE [Suspect]
     Dosage: 16/12.5 mg
  4. ACETAMINOPHEN/CAFFEINE/CODEINE [Suspect]
  5. DIMENHYDRINATE [Suspect]
  6. ETHANOL [Suspect]

REACTIONS (18)
  - Toxicity to various agents [Recovered/Resolved]
  - Intentional overdose [Recovered/Resolved]
  - Suicide attempt [Recovered/Resolved]
  - Angina pectoris [Recovered/Resolved]
  - Intentional self-injury [None]
  - Hypotension [None]
  - Sinus bradycardia [None]
  - Respiratory rate increased [None]
  - Haemoglobin decreased [None]
  - Blood creatinine increased [None]
  - Blood potassium decreased [None]
  - Blood chloride increased [None]
  - Blood bicarbonate decreased [None]
  - Troponin T increased [None]
  - Blood pH decreased [None]
  - PO2 decreased [None]
  - Haemodynamic instability [None]
  - No therapeutic response [None]
